FAERS Safety Report 10557759 (Version 3)
Quarter: 2014Q4

REPORT INFORMATION
  Report Type: Report from Study
  Country: CA (occurrence: CA)
  Receive Date: 20141031
  Receipt Date: 20141231
  Transmission Date: 20150529
  Serious: Yes (Other)
  Sender: FDA-Public Use
  Company Number: CA-BAYER-2014-143632

PATIENT
  Age: 80 Year
  Sex: Male

DRUGS (6)
  1. STIVARGA [Suspect]
     Active Substance: REGORAFENIB
     Indication: COLORECTAL CANCER METASTATIC
     Dosage: 160 MG, OD
     Route: 048
     Dates: start: 20140919, end: 20141006
  2. SALBUTAMOL [Concomitant]
     Active Substance: ALBUTEROL
  3. LIPITOR [Concomitant]
     Active Substance: ATORVASTATIN CALCIUM
  4. SPIRIVA [Concomitant]
     Active Substance: TIOTROPIUM BROMIDE MONOHYDRATE
  5. STIVARGA [Suspect]
     Active Substance: REGORAFENIB
     Indication: COLORECTAL CANCER METASTATIC
     Dosage: 80 MG, QD
     Route: 048
     Dates: start: 20141018, end: 20141024
  6. PREVACID [Concomitant]
     Active Substance: LANSOPRAZOLE

REACTIONS (12)
  - Nail bed bleeding [Not Recovered/Not Resolved]
  - Fatigue [Unknown]
  - Decreased appetite [Recovering/Resolving]
  - Skin fissures [Not Recovered/Not Resolved]
  - Peripheral swelling [Not Recovered/Not Resolved]
  - Skin reaction [Unknown]
  - Hypertension [Not Recovered/Not Resolved]
  - Skin warm [Not Recovered/Not Resolved]
  - Pain [Not Recovered/Not Resolved]
  - Epistaxis [Not Recovered/Not Resolved]
  - Acarodermatitis [Recovering/Resolving]
  - Vomiting [Not Recovered/Not Resolved]

NARRATIVE: CASE EVENT DATE: 2014
